FAERS Safety Report 18501635 (Version 1)
Quarter: 2020Q4

REPORT INFORMATION
  Report Type: Spontaneous
  Country: IN (occurrence: IN)
  Receive Date: 20201113
  Receipt Date: 20201113
  Transmission Date: 20210114
  Serious: Yes (Other)
  Sender: FDA-Public Use
  Company Number: IN-MEITHEAL PHARMACEUTICALS-2020MHL00075

PATIENT
  Sex: Male

DRUGS (1)
  1. BLEOMYCIN [Suspect]
     Active Substance: BLEOMYCIN SULFATE
     Indication: CYSTIC LYMPHANGIOMA
     Route: 065

REACTIONS (1)
  - Lipofibroma [Unknown]
